FAERS Safety Report 24533608 (Version 1)
Quarter: 2024Q4

REPORT INFORMATION
  Report Type: Spontaneous
  Country: US (occurrence: None)
  Receive Date: 20241021
  Receipt Date: 20241021
  Transmission Date: 20250114
  Serious: Yes (Death)
  Sender: Public
  Company Number: None

PATIENT
  Sex: Female

DRUGS (6)
  1. TERIFLUNOMIDE [Suspect]
     Active Substance: TERIFLUNOMIDE
     Indication: Multiple sclerosis
     Dosage: FREQUENCY : DAILY;?
     Route: 048
     Dates: start: 20230428
  2. AMPYRA [Concomitant]
     Active Substance: DALFAMPRIDINE
  3. AUBAGIO [Concomitant]
  4. CRESTOR [Concomitant]
     Active Substance: ROSUVASTATIN CALCIUM
  5. FLUOXETINE [Concomitant]
  6. METOPROL [Concomitant]

REACTIONS (1)
  - Death [None]
